FAERS Safety Report 5556006-2 (Version None)
Quarter: 2007Q4

REPORT INFORMATION
  Report Type: 
  Country: None (occurrence: None)
  Receive Date: 20071130
  Receipt Date: 20070730
  Transmission Date: 20080405
  Serious: No
  Sender: FDA-Public Use
  Company Number: US200706003569

PATIENT
  Age: 43 Year
  Sex: Female

DRUGS (11)
  1. BYETTA [Suspect]
     Indication: TYPE 2 DIABETES MELLITUS
     Dosage: 5 UG, 2/D, SUBCUTANEOUS; 10 UG, 2/D, SUBCUTANEOUS
     Route: 058
     Dates: start: 20060324, end: 20060424
  2. BYETTA [Suspect]
     Indication: TYPE 2 DIABETES MELLITUS
     Dosage: 5 UG, 2/D, SUBCUTANEOUS; 10 UG, 2/D, SUBCUTANEOUS
     Route: 058
     Dates: start: 20060424, end: 20070601
  3. METFORMIN HCL [Concomitant]
  4. ALBUTEROL [Concomitant]
  5. REQUIP [Concomitant]
  6. CRESTOR [Concomitant]
  7. ZOMIG [Concomitant]
  8. ORTHO EVRA [Concomitant]
  9. CLARITIN [Concomitant]
  10. MULTIVITAMINS (VITAMINS NOS) [Concomitant]
  11. ASPIRIN [Concomitant]

REACTIONS (7)
  - HYPOTHYROIDISM [None]
  - IMPAIRED GASTRIC EMPTYING [None]
  - NAUSEA [None]
  - PNEUMONIA [None]
  - UPPER RESPIRATORY TRACT INFECTION [None]
  - VOMITING [None]
  - WEIGHT INCREASED [None]
